FAERS Safety Report 18502308 (Version 1)
Quarter: 2020Q4

REPORT INFORMATION
  Report Type: Other
  Country: US (occurrence: US)
  Receive Date: 20201113
  Receipt Date: 20201113
  Transmission Date: 20210114
  Serious: No
  Sender: FDA-Public Use
  Company Number: US-LEADIANT BIOSCIENCES INC-2020STPI000037

PATIENT
  Sex: Female

DRUGS (8)
  1. CALCIUM CARBONATE. [Concomitant]
     Active Substance: CALCIUM CARBONATE
  2. CYSTARAN [Suspect]
     Active Substance: CYSTEAMINE HYDROCHLORIDE
     Indication: CYSTINOSIS
     Dosage: 1 DROP EVERY WAKING HOUR
     Route: 047
     Dates: start: 20161217
  3. RANITIDINE. [Concomitant]
     Active Substance: RANITIDINE
  4. PROCYSBI [Concomitant]
     Active Substance: CYSTEAMINE BITARTRATE
  5. CALCITRIOL. [Concomitant]
     Active Substance: CALCITRIOL
  6. LEVOCARNITIN [Concomitant]
  7. POTASSIUM SORBATE [Concomitant]
     Active Substance: POTASSIUM SORBATE
  8. NORDITROPIN [Concomitant]
     Active Substance: SOMATROPIN

REACTIONS (1)
  - Eye irritation [Not Recovered/Not Resolved]
